FAERS Safety Report 24962383 (Version 1)
Quarter: 2025Q1

REPORT INFORMATION
  Report Type: Spontaneous
  Country: NL (occurrence: NL)
  Receive Date: 20250212
  Receipt Date: 20250212
  Transmission Date: 20250409
  Serious: Yes (Other)
  Sender: TEVA
  Company Number: None

PATIENT
  Age: 58 Year
  Sex: Male
  Weight: 110 kg

DRUGS (1)
  1. PREGABALIN [Suspect]
     Active Substance: PREGABALIN
     Indication: Hernia pain
     Dosage: 2X PER DAY; BRAND NAME NOT SPECIFIED
     Route: 048
     Dates: start: 20250123, end: 202501

REACTIONS (1)
  - Arrhythmia [Not Recovered/Not Resolved]
